FAERS Safety Report 12137390 (Version 1)
Quarter: 2016Q1

REPORT INFORMATION
  Report Type: Spontaneous
  Country: US (occurrence: None)
  Receive Date: 20160301
  Receipt Date: 20160301
  Transmission Date: 20160526
  Serious: Yes (Other)
  Sender: FDA-Public Use
  Company Number: None

PATIENT
  Age: 57 Year
  Sex: Female
  Weight: 58.97 kg

DRUGS (1)
  1. DRITHROCREME HP 1% SUMMERS PHARMA [Suspect]
     Active Substance: ANTHRALIN
     Indication: ALOPECIA
     Dosage: APPLY TID, TOPICAL
     Route: 061
     Dates: start: 20160224, end: 20160224

REACTIONS (5)
  - Application site erythema [None]
  - Application site irritation [None]
  - Application site vesicles [None]
  - Application site haemorrhage [None]
  - Skin discolouration [None]

NARRATIVE: CASE EVENT DATE: 20160228
